FAERS Safety Report 22116607 (Version 1)
Quarter: 2023Q1

REPORT INFORMATION
  Report Type: Spontaneous
  Country: CN (occurrence: CN)
  Receive Date: 20230320
  Receipt Date: 20230320
  Transmission Date: 20230417
  Serious: Yes (Other)
  Sender: FDA-Public Use
  Company Number: CN-Merck Healthcare KGaA-9388407

PATIENT
  Age: 50 Year
  Sex: Female
  Weight: 50 kg

DRUGS (5)
  1. ERBITUX [Suspect]
     Active Substance: CETUXIMAB
     Indication: Colon cancer metastatic
     Dosage: 140 ML, UNKNOWN
     Route: 041
     Dates: start: 20230217, end: 20230217
  2. IRINOTECAN HYDROCHLORIDE [Suspect]
     Active Substance: IRINOTECAN HYDROCHLORIDE
     Indication: Colon cancer metastatic
     Dosage: 13 ML, DAILY
     Route: 041
     Dates: start: 20230217, end: 20230217
  3. SODIUM CHLORIDE [Suspect]
     Active Substance: SODIUM CHLORIDE
     Indication: Colon cancer metastatic
     Dosage: 250 ML, DAILY
     Route: 041
     Dates: start: 20230217, end: 20230217
  4. SODIUM CHLORIDE [Suspect]
     Active Substance: SODIUM CHLORIDE
     Dosage: 100 ML, DAILY
     Route: 041
     Dates: start: 20230217, end: 20230217
  5. RALTITREXED [Suspect]
     Active Substance: RALTITREXED
     Indication: Colon cancer metastatic
     Dosage: 4 MG, DAILY
     Route: 041
     Dates: start: 20230217, end: 20230217

REACTIONS (4)
  - Hepatic function abnormal [Recovering/Resolving]
  - Cytopenia [Recovering/Resolving]
  - Asthenia [Recovering/Resolving]
  - Decreased appetite [Recovering/Resolving]

NARRATIVE: CASE EVENT DATE: 20230304
